FAERS Safety Report 18555439 (Version 2)
Quarter: 2020Q4

REPORT INFORMATION
  Report Type: Report from Study
  Country: CA (occurrence: CA)
  Receive Date: 20201127
  Receipt Date: 20201214
  Transmission Date: 20210114
  Serious: Yes (Hospitalization)
  Sender: FDA-Public Use
  Company Number: CA-JNJFOC-20201142089

PATIENT
  Age: 15 Year
  Sex: Female
  Weight: 72.7 kg

DRUGS (3)
  1. REMICADE [Suspect]
     Active Substance: INFLIXIMAB
     Indication: COLITIS ULCERATIVE
     Dosage: THE PATIENT HAD RECEIVED 2 DOSES OF 800 MG, ON 11-NOV-2020 AND THEN ON 15-NOV-2020.
     Route: 042
     Dates: start: 20201111
  2. REMICADE [Suspect]
     Active Substance: INFLIXIMAB
     Dosage: 07/DEC/2020, THE PATIENT RECEIVED 1ST INFUSION WITH DOSE 750 MG
     Route: 042
     Dates: start: 20201207
  3. PREDNISONE. [Concomitant]
     Active Substance: PREDNISONE
     Indication: PRODUCT USED FOR UNKNOWN INDICATION
     Route: 065

REACTIONS (4)
  - Product use issue [Unknown]
  - Hospitalisation [Recovered/Resolved]
  - Off label use [Unknown]
  - Incorrect dose administered [Unknown]

NARRATIVE: CASE EVENT DATE: 20201111
